FAERS Safety Report 8785613 (Version 2)
Quarter: 2013Q1

REPORT INFORMATION
  Report Type: Spontaneous
  Country: AU (occurrence: None)
  Receive Date: 20120831
  Receipt Date: 20121004
  Transmission Date: 20140127
  Serious: Yes (Hospitalization)
  Sender: FDA-Public Use
  Company Number: 2012-002311

PATIENT
  Age: 76 Year
  Sex: Female

DRUGS (8)
  1. ACTONEL (RISEDRONATE SODIUM) TABLET, 150MG [Suspect]
     Indication: OSTEOPOROSIS
     Route: 048
     Dates: start: 20111203, end: 20120221
  2. ALLOPURINOL [Concomitant]
  3. METFORMIN (METFORMIN) [Concomitant]
  4. LIPITOR (ATORVASTATIN CALCIUM) [Concomitant]
  5. ATACAND (CANDESARTAN CILEXETIL) [Concomitant]
  6. AMARYL (GLIMEPIRIDE) [Concomitant]
  7. AVAPRO (IRBESARTAN) [Concomitant]
  8. NITRAZEPAM (NITRAZEPAM) [Concomitant]

REACTIONS (16)
  - Cholangitis [None]
  - Nausea [None]
  - Dizziness [None]
  - Mobility decreased [None]
  - Abdominal pain [None]
  - Liver disorder [None]
  - Drug-induced liver injury [None]
  - Drug-induced liver injury [None]
  - Cholecystitis [None]
  - Dysgeusia [None]
  - Bile duct stone [None]
  - Malaise [None]
  - Asthenia [None]
  - Arthralgia [None]
  - Oedema peripheral [None]
  - Blood albumin decreased [None]
